FAERS Safety Report 16529724 (Version 2)
Quarter: 2020Q1

REPORT INFORMATION
  Report Type: Report from Study
  Country: None (occurrence: TR)
  Receive Date: 20190704
  Receipt Date: 20200305
  Transmission Date: 20200409
  Serious: Yes (Death, Hospitalization)
  Sender: FDA-Public Use
  Company Number: TR-ABBVIE-19K-161-2837298-00

PATIENT
  Sex: Female
  Weight: 57 kg

DRUGS (1)
  1. DUODOPA [Suspect]
     Active Substance: CARBIDOPA\LEVODOPA
     Indication: PARKINSON^S DISEASE
     Dosage: MORNING DOSE (ML): 4,80 CONTINUOS DOSE (ML): 3,80 EXTRA DOSE (ML): 2,00
     Route: 050
     Dates: start: 20170418

REACTIONS (1)
  - General physical health deterioration [Fatal]
